FAERS Safety Report 15642385 (Version 1)
Quarter: 2018Q4

REPORT INFORMATION
  Report Type: Spontaneous
  Country: US (occurrence: US)
  Receive Date: 20181114
  Receipt Date: 20181114
  Transmission Date: 20190205
  Serious: No
  Sender: FDA-Public Use
  Company Number: None

PATIENT
  Sex: Female

DRUGS (1)
  1. SUTENT [Suspect]
     Active Substance: SUNITINIB MALATE
     Indication: RENAL CANCER
     Dosage: DAILYX 4 WK ON 2WK OFF
     Route: 048

REACTIONS (4)
  - Swelling face [None]
  - Blood pressure increased [None]
  - Fatigue [None]
  - Migraine [None]
